FAERS Safety Report 16611166 (Version 1)
Quarter: 2019Q3

REPORT INFORMATION
  Report Type: Spontaneous
  Country: US (occurrence: US)
  Receive Date: 20190722
  Receipt Date: 20190722
  Transmission Date: 20191004
  Serious: No
  Sender: FDA-Public Use
  Company Number: US-SA-2019SA196310

PATIENT
  Age: 78 Year
  Sex: Male

DRUGS (1)
  1. KEVZARA [Suspect]
     Active Substance: SARILUMAB
     Indication: ARTHRITIS
     Dosage: 200 MG, QOW
     Route: 058
     Dates: start: 20190613

REACTIONS (2)
  - Product use in unapproved indication [Unknown]
  - Unevaluable event [Unknown]

NARRATIVE: CASE EVENT DATE: 2019
